FAERS Safety Report 9637380 (Version 1)
Quarter: 2013Q4

REPORT INFORMATION
  Report Type: Spontaneous
  Country: BR (occurrence: BR)
  Receive Date: 20131022
  Receipt Date: 20131022
  Transmission Date: 20140711
  Serious: Yes (Other)
  Sender: FDA-Public Use
  Company Number: PHHY2013BR118305

PATIENT
  Age: 78 Year
  Sex: Male

DRUGS (3)
  1. FORADIL [Suspect]
     Indication: EMPHYSEMA
     Dosage: 12 UG, BID
  2. FORADIL [Suspect]
     Dosage: 12 UG, UNK
  3. DIPROSPAN [Suspect]
     Indication: ASTHMA
     Dosage: 1 DF, QMO

REACTIONS (5)
  - Thrombosis [Unknown]
  - Swollen tongue [Unknown]
  - Dyspnoea [Unknown]
  - Fall [Unknown]
  - Syncope [Unknown]
